FAERS Safety Report 6805122-3 (Version None)
Quarter: 2010Q2

REPORT INFORMATION
  Report Type: 
  Country: None (occurrence: None)
  Receive Date: 20100628
  Receipt Date: 20070817
  Transmission Date: 20101027
  Serious: No
  Sender: FDA-Public Use
  Company Number: US-PFIZER INC-2007070850

PATIENT
  Sex: Female
  Weight: 63.96 kg

DRUGS (7)
  1. XALATAN [Suspect]
     Indication: GLAUCOMA
     Dates: start: 20070804
  2. VYTORIN [Concomitant]
     Indication: BLOOD CHOLESTEROL INCREASED
  3. SYNTHROID [Concomitant]
     Indication: THYROID DISORDER
  4. EVISTA [Concomitant]
  5. ZYRTEC [Concomitant]
  6. MONTELUKAST SODIUM [Concomitant]
  7. FLUOXETINE [Concomitant]

REACTIONS (3)
  - DYSURIA [None]
  - EYE IRRITATION [None]
  - EYE PRURITUS [None]
